FAERS Safety Report 9162315 (Version 1)
Quarter: 2013Q1

REPORT INFORMATION
  Report Type: Spontaneous
  Country: US (occurrence: US)
  Receive Date: 20130314
  Receipt Date: 20130314
  Transmission Date: 20140127
  Serious: Yes (Other)
  Sender: FDA-Public Use
  Company Number: US-BAYER-2013-030284

PATIENT
  Age: 41 Year
  Sex: Female

DRUGS (7)
  1. YASMIN [Suspect]
  2. DOXEPIN [Concomitant]
  3. VIOXX [Concomitant]
  4. AMBIEN [Concomitant]
  5. ACCOLATE [Concomitant]
  6. ADVAIR [Concomitant]
  7. ALLEGRA [Concomitant]

REACTIONS (1)
  - Deep vein thrombosis [None]
